FAERS Safety Report 4811295-4 (Version None)
Quarter: 2005Q4

REPORT INFORMATION
  Report Type: 
  Country: None (occurrence: None)
  Receive Date: 20051025
  Receipt Date: 20051013
  Transmission Date: 20060501
  Serious: Yes (Death, Hospitalization, Other)
  Sender: FDA-Public Use
  Company Number: 2005-06-0904

PATIENT
  Age: 43 Year
  Sex: Male
  Weight: 70 kg

DRUGS (7)
  1. VIRAFERONPEG [Suspect]
     Indication: HEPATITIS C
     Dosage: 80 UG SUBCUTANEOUS
     Route: 058
     Dates: start: 20041112, end: 20050425
  2. COPEGUS [Suspect]
     Indication: HEPATITIS C
     Dosage: 1000 MG QD ORAL
     Route: 048
     Dates: start: 20041112, end: 20050425
  3. ZIAGEN [Suspect]
     Indication: HIV INFECTION
     Dosage: 600 MG QD ORAL
     Route: 048
     Dates: start: 20020203, end: 20050425
  4. VIREAD [Suspect]
     Indication: HIV INFECTION
     Dosage: 245 MG ORAL
     Route: 048
     Dates: start: 20020203, end: 20050425
  5. SUSTIVA [Suspect]
     Indication: HIV INFECTION
     Dosage: 600 ORAL
     Route: 048
     Dates: start: 20020203, end: 20050425
  6. NEURONTIN [Suspect]
     Indication: EPILEPSY
     Dosage: 1200 MG QD ORAL
     Route: 048
     Dates: start: 20040311
  7. IMODIUM [Concomitant]

REACTIONS (20)
  - AGITATION [None]
  - BLOOD CREATININE INCREASED [None]
  - CARDIAC ARREST [None]
  - COMA [None]
  - CONFUSIONAL STATE [None]
  - DEPRESSED LEVEL OF CONSCIOUSNESS [None]
  - DISORIENTATION [None]
  - DYSARTHRIA [None]
  - HAEMOLYTIC ANAEMIA [None]
  - HEPATOMEGALY [None]
  - NERVOUS SYSTEM DISORDER [None]
  - OCULAR ICTERUS [None]
  - PALLOR [None]
  - PETECHIAE [None]
  - PYREXIA [None]
  - REFLEXES ABNORMAL [None]
  - SHOCK [None]
  - TACHYCARDIA [None]
  - TACHYPNOEA [None]
  - THROMBOTIC THROMBOCYTOPENIC PURPURA [None]
